FAERS Safety Report 25679335 (Version 1)
Quarter: 2025Q3

REPORT INFORMATION
  Report Type: Spontaneous
  Country: CN (occurrence: CN)
  Receive Date: 20250814
  Receipt Date: 20250814
  Transmission Date: 20251021
  Serious: Yes (Hospitalization, Other)
  Sender: BEIGENE
  Company Number: CN-BEIGENE-BGN-2025-013236

PATIENT
  Age: 61 Year

DRUGS (8)
  1. TISLELIZUMAB [Suspect]
     Active Substance: TISLELIZUMAB
     Indication: Small cell lung cancer
  2. TISLELIZUMAB [Suspect]
     Active Substance: TISLELIZUMAB
     Route: 041
  3. TISLELIZUMAB [Suspect]
     Active Substance: TISLELIZUMAB
     Route: 041
  4. TISLELIZUMAB [Suspect]
     Active Substance: TISLELIZUMAB
  5. CARBOPLATIN [Concomitant]
     Active Substance: CARBOPLATIN
  6. ETOPOSIDE [Concomitant]
     Active Substance: ETOPOSIDE
  7. TRILACICLIB [Concomitant]
     Active Substance: TRILACICLIB
     Route: 041
  8. TRILACICLIB [Concomitant]
     Active Substance: TRILACICLIB

REACTIONS (1)
  - Drug eruption [Recovering/Resolving]
